FAERS Safety Report 5842597-0 (Version None)
Quarter: 2008Q3

REPORT INFORMATION
  Report Type: 
  Country: None (occurrence: None)
  Receive Date: 20080812
  Receipt Date: 20080729
  Transmission Date: 20090109
  Serious: Yes (Other)
  Sender: FDA-Public Use
  Company Number: ES-MERCK-0807ESP00034

PATIENT
  Age: 42 Year
  Sex: Male

DRUGS (6)
  1. PRIMAXIN [Suspect]
     Indication: EVIDENCE BASED TREATMENT
     Route: 042
     Dates: start: 19951001, end: 19950101
  2. CYCLOSPORINE [Concomitant]
     Route: 065
  3. PREDNISONE [Concomitant]
     Route: 065
  4. AZATHIOPRINE [Concomitant]
     Route: 065
  5. SULFAMETHOXAZOLE AND TRIMETHOPRIM [Concomitant]
     Route: 065
  6. RANITIDINE [Concomitant]
     Route: 065

REACTIONS (3)
  - CLOSTRIDIUM DIFFICILE COLITIS [None]
  - GASTROINTESTINAL OEDEMA [None]
  - MEGACOLON [None]
